FAERS Safety Report 23511504 (Version 2)
Quarter: 2024Q1

REPORT INFORMATION
  Report Type: Spontaneous
  Country: FR (occurrence: FR)
  Receive Date: 20240212
  Receipt Date: 20240226
  Transmission Date: 20240410
  Serious: Yes (Hospitalization, Other)
  Sender: FDA-Public Use
  Company Number: FR-SANOFI-01862879

PATIENT
  Age: 34 Year
  Sex: Male

DRUGS (2)
  1. PRIMPERAN [Suspect]
     Active Substance: METOCLOPRAMIDE HYDROCHLORIDE
     Indication: Back pain
     Dosage: 1 DF, Q8H
     Dates: end: 202310
  2. GAVISCON REGULAR STRENGTH (ALUMINUM HYDROXIDE\MAGNESIUM TRISILICATE) [Suspect]
     Active Substance: ALUMINUM HYDROXIDE\MAGNESIUM TRISILICATE
     Indication: Back pain
     Dosage: UNK

REACTIONS (30)
  - Cerebrovascular accident [Unknown]
  - Paralysis [Unknown]
  - Dyspraxia [Unknown]
  - Gait inability [Unknown]
  - Visual impairment [Unknown]
  - Insomnia [Unknown]
  - Pain [Recovering/Resolving]
  - Eye disorder [Unknown]
  - Oral discomfort [Unknown]
  - Facial paralysis [Recovering/Resolving]
  - Tardive dyskinesia [Unknown]
  - Hypertension [Recovering/Resolving]
  - Disorientation [Recovering/Resolving]
  - Fear [Unknown]
  - Anxiety [Unknown]
  - Aphasia [Unknown]
  - Peripheral coldness [Unknown]
  - Osteoarthritis [Unknown]
  - Anaemia [Unknown]
  - Blood urine present [Unknown]
  - Chest pain [Recovering/Resolving]
  - Hypoaesthesia [Unknown]
  - Speech disorder [Unknown]
  - Depression [Unknown]
  - Hypotension [Unknown]
  - Decreased interest [Unknown]
  - Fatigue [Unknown]
  - Diplopia [Unknown]
  - Bradykinesia [Unknown]
  - Hypersomnia [Unknown]

NARRATIVE: CASE EVENT DATE: 20230101
